APPROVED DRUG PRODUCT: METHOTREXATE SODIUM PRESERVATIVE FREE
Active Ingredient: METHOTREXATE SODIUM
Strength: EQ 50MG BASE/2ML (EQ 25MG BASE/ML)
Dosage Form/Route: INJECTABLE;INJECTION
Application: A090039 | Product #001 | TE Code: AP
Applicant: CAPLIN ONE LABS LTD
Approved: Mar 31, 2009 | RLD: No | RS: No | Type: RX